FAERS Safety Report 21933275 (Version 1)
Quarter: 2023Q1

REPORT INFORMATION
  Report Type: Report from Study
  Country: BR (occurrence: BR)
  Receive Date: 20230131
  Receipt Date: 20230131
  Transmission Date: 20230417
  Serious: Yes (Hospitalization)
  Sender: FDA-Public Use
  Company Number: BR-BIOGEN-2023BI01183580

PATIENT
  Sex: Female

DRUGS (3)
  1. TECFIDERA [Suspect]
     Active Substance: DIMETHYL FUMARATE
     Indication: Multiple sclerosis
     Route: 050
     Dates: start: 202005, end: 202009
  2. SIMVASTATIN [Concomitant]
     Active Substance: SIMVASTATIN
     Indication: Blood cholesterol increased
     Route: 050
     Dates: start: 2018
  3. CANNABIDIOL [Concomitant]
     Active Substance: CANNABIDIOL
     Indication: Multiple sclerosis
     Route: 050

REACTIONS (1)
  - Multiple sclerosis [Unknown]
